FAERS Safety Report 5369200-0 (Version None)
Quarter: 2007Q2

REPORT INFORMATION
  Report Type: 
  Country: None (occurrence: None)
  Receive Date: 20070625
  Receipt Date: 20070611
  Transmission Date: 20071010
  Serious: Yes (Other)
  Sender: FDA-Public Use
  Company Number: JP-ROCHE-491197

PATIENT
  Age: 42 Year
  Sex: Female

DRUGS (4)
  1. TAMIFLU [Suspect]
     Route: 048
     Dates: start: 20070327, end: 20070327
  2. TAMIFLU [Suspect]
     Route: 048
     Dates: start: 20070328, end: 20070328
  3. TAMIFLU [Suspect]
     Dosage: THE PATIENT HAS RECEIVED FOUR DOSES OF TAMIFLU UNTIL 30 MARCH 2007.
     Route: 048
     Dates: start: 20070329, end: 20070329
  4. CALONAL [Concomitant]
     Dosage: GENERIC REPORTED AS ACETAMINOPHEN.
     Route: 048
     Dates: start: 20070327, end: 20070329

REACTIONS (3)
  - DIARRHOEA [None]
  - DYSGEUSIA [None]
  - PAROSMIA [None]
